FAERS Safety Report 9383974 (Version 1)
Quarter: 2013Q3

REPORT INFORMATION
  Report Type: Spontaneous
  Country: TR (occurrence: TR)
  Receive Date: 20130705
  Receipt Date: 20130705
  Transmission Date: 20140515
  Serious: Yes (Other)
  Sender: FDA-Public Use
  Company Number: TR-AMGEN-TURSP2012014860

PATIENT
  Age: 29 Year
  Sex: Male

DRUGS (4)
  1. ENBREL [Suspect]
     Indication: RHEUMATOID ARTHRITIS
     Dosage: 50 MG WEEKLY
     Route: 058
     Dates: start: 20080613, end: 20110613
  2. ENBREL [Suspect]
     Dosage: 50 MG, ONCE IN 15 DAYS
     Route: 058
     Dates: start: 20110613, end: 20120105
  3. ENBREL [Suspect]
     Dosage: 50 MG, CYCLIC ONCE IN 15 DAYS
     Route: 058
     Dates: start: 2012, end: 20130129
  4. ENBREL [Suspect]
     Dosage: 50 MG, CYCLIC ONCE IN 15 DAYS
     Route: 058
     Dates: start: 2013, end: 201306

REACTIONS (9)
  - Pyrexia [Recovered/Resolved]
  - Acne [Not Recovered/Not Resolved]
  - Abdominal pain upper [Recovered/Resolved]
  - Urinary tract infection [Not Recovered/Not Resolved]
  - Feeling hot [Not Recovered/Not Resolved]
  - Gingival bleeding [Not Recovered/Not Resolved]
  - Injection site warmth [Recovered/Resolved]
  - Injection site erythema [Recovered/Resolved]
  - Influenza [Not Recovered/Not Resolved]
